FAERS Safety Report 15516493 (Version 1)
Quarter: 2018Q4

REPORT INFORMATION
  Report Type: Spontaneous
  Country: CN (occurrence: CN)
  Receive Date: 20181017
  Receipt Date: 20181017
  Transmission Date: 20190205
  Serious: Yes (Death)
  Sender: FDA-Public Use
  Company Number: CN-MYLANLABS-2018M1076033

PATIENT
  Age: 57 Year
  Sex: Male

DRUGS (4)
  1. LINEZOLID. [Suspect]
     Active Substance: LINEZOLID
     Indication: RESPIRATORY FAILURE
  2. LINEZOLID. [Suspect]
     Active Substance: LINEZOLID
     Indication: PNEUMONIA
     Route: 042
  3. CILASTATIN SODIUM W/IMIPENEM [Concomitant]
     Active Substance: CILASTATIN SODIUM\IMIPENEM
     Indication: RESPIRATORY FAILURE
  4. CILASTATIN SODIUM W/IMIPENEM [Concomitant]
     Active Substance: CILASTATIN SODIUM\IMIPENEM
     Indication: PNEUMONIA
     Route: 042

REACTIONS (6)
  - Heart rate decreased [Fatal]
  - Respiratory failure [Fatal]
  - Condition aggravated [Fatal]
  - Blood pressure decreased [Fatal]
  - Blood creatinine increased [Fatal]
  - Lactic acidosis [Fatal]
